FAERS Safety Report 7315208-5 (Version None)
Quarter: 2011Q1

REPORT INFORMATION
  Report Type: 
  Country: None (occurrence: None)
  Receive Date: 20110218
  Receipt Date: 20110218
  Transmission Date: 20110831
  Serious: Yes (Hospitalization)
  Sender: FDA-Public Use
  Company Number: None

PATIENT
  Age: 65 Year
  Sex: Male
  Weight: 107 kg

DRUGS (1)
  1. LITHIUM CARBONATE [Suspect]
     Indication: SCHIZOPHRENIA, PARANOID TYPE
     Dosage: 300 MG BID PO
     Route: 048
     Dates: start: 19941122, end: 20110216

REACTIONS (13)
  - DEHYDRATION [None]
  - UPPER RESPIRATORY TRACT INFECTION [None]
  - BLOOD CREATININE INCREASED [None]
  - TOXICITY TO VARIOUS AGENTS [None]
  - TREMOR [None]
  - BLOOD UREA INCREASED [None]
  - RENAL IMPAIRMENT [None]
  - HYPERGLYCAEMIA [None]
  - GAIT DISTURBANCE [None]
  - PARKINSONISM [None]
  - CONFUSIONAL STATE [None]
  - DYSARTHRIA [None]
  - BLOOD GLUCOSE INCREASED [None]
